FAERS Safety Report 5911366-5 (Version None)
Quarter: 2008Q4

REPORT INFORMATION
  Report Type: 
  Country: None (occurrence: None)
  Receive Date: 20081007
  Receipt Date: 20080729
  Transmission Date: 20090506
  Serious: No
  Sender: FDA-Public Use
  Company Number: US-ASTRAZENECA-2008UW14906

PATIENT
  Age: 62 Year
  Sex: Female
  Weight: 103.4 kg

DRUGS (12)
  1. ARIMIDEX [Suspect]
     Indication: BREAST CANCER
     Route: 048
     Dates: start: 20030101
  2. ISOSORBIDE [Concomitant]
  3. METOPROLOL TARTRATE [Concomitant]
  4. VYTORIN [Concomitant]
  5. PLAVIX [Concomitant]
  6. FOLIC ACID [Concomitant]
  7. DEPAKOTE [Concomitant]
  8. CLOPAMIDE [Concomitant]
  9. NIACIN [Concomitant]
  10. DIABETES MEDICATION [Concomitant]
     Indication: DIABETES MELLITUS
  11. CALCIUM [Concomitant]
  12. MULTI-VITAMIN [Concomitant]

REACTIONS (3)
  - ARTHRALGIA [None]
  - ARTHRITIS [None]
  - OSTEOARTHRITIS [None]
